FAERS Safety Report 6829136-2 (Version None)
Quarter: 2010Q3

REPORT INFORMATION
  Report Type: 
  Country: None (occurrence: None)
  Receive Date: 20100706
  Receipt Date: 20100618
  Transmission Date: 20110219
  Serious: Yes (Hospitalization)
  Sender: FDA-Public Use
  Company Number: 2010002540

PATIENT
  Age: 59 Year
  Sex: Male
  Weight: 87.1 kg

DRUGS (10)
  1. ERLOTINIB HYDROCHLORIDE [Suspect]
     Indication: LUNG ADENOCARCINOMA
     Dosage: 150 MG, QD, ORAL
     Route: 048
     Dates: start: 20080805, end: 20090105
  2. KOLANTYL [Concomitant]
  3. SEVEN E-P [Concomitant]
  4. ALLOPURINOL [Concomitant]
  5. FAMOTIDINE [Concomitant]
  6. GLUCOBAY [Concomitant]
  7. PIOGLITAZONE HCL [Concomitant]
  8. ZOLPIDEM TARTRATE [Concomitant]
  9. MUCOSTA (REBAMIPIDE) [Concomitant]
  10. BIOFERMIN [Concomitant]

REACTIONS (2)
  - INTERSTITIAL LUNG DISEASE [None]
  - LUNG DISORDER [None]
